FAERS Safety Report 7703228 (Version 3)
Quarter: 2022Q4

REPORT INFORMATION
  Report Type: Spontaneous
  Country: US (occurrence: None)
  Receive Date: 20101210
  Receipt Date: 20221009
  Transmission Date: 20230113
  Serious: Yes (Hospitalization, Other)
  Sender: FDA-Public Use
  Company Number: US-ROCHE-745028

PATIENT
  Age: 61 Year
  Sex: Female
  Weight: 73.548 kg

DRUGS (4)
  1. BONIVA [Suspect]
     Active Substance: IBANDRONATE SODIUM
     Indication: Osteoporosis
     Route: 048
     Dates: start: 2006, end: 2009
  2. BONIVA [Suspect]
     Active Substance: IBANDRONATE SODIUM
     Indication: Osteopenia
  3. FOSAMAX [Suspect]
     Active Substance: ALENDRONATE SODIUM
     Indication: Osteoporosis
     Route: 065
     Dates: start: 2003, end: 2006
  4. FOSAMAX [Suspect]
     Active Substance: ALENDRONATE SODIUM
     Indication: Osteopenia

REACTIONS (8)
  - Femur fracture [Unknown]
  - Low turnover osteopathy [Unknown]
  - Anxiety [Unknown]
  - Emotional distress [Unknown]
  - Fatigue [Unknown]
  - Bursitis [Unknown]
  - Pain in extremity [Unknown]
  - Diverticulum [Unknown]

NARRATIVE: CASE EVENT DATE: 20061024
